FAERS Safety Report 20784928 (Version 1)
Quarter: 2022Q2

REPORT INFORMATION
  Report Type: Spontaneous
  Country: US (occurrence: None)
  Receive Date: 20220503
  Receipt Date: 20220503
  Transmission Date: 20220721
  Serious: Yes (Other)
  Sender: FDA-Public Use
  Company Number: None

PATIENT
  Age: 66 Year
  Sex: Male

DRUGS (12)
  1. DUPIXENT [Suspect]
     Active Substance: DUPILUMAB
     Dates: start: 20220214
  2. BISOPROLOL [Concomitant]
     Active Substance: BISOPROLOL
  3. DOXAZOSIN [Concomitant]
     Active Substance: DOXAZOSIN MESYLATE
  4. IPRATROPIUM/ALB NEBULIZER [Concomitant]
  5. OLOPATADINE [Concomitant]
     Active Substance: OLOPATADINE
  6. PANTOPRAOLE [Concomitant]
  7. SILODOSIN [Concomitant]
  8. ATORVASTATIN [Concomitant]
     Active Substance: ATORVASTATIN
  9. CLOPIDOGREL [Concomitant]
     Active Substance: CLOPIDOGREL BISULFATE
  10. EZETIMIBE [Concomitant]
     Active Substance: EZETIMIBE
  11. LIALDA [Concomitant]
     Active Substance: MESALAMINE
  12. MONTELUKAST [Concomitant]
     Active Substance: MONTELUKAST SODIUM

REACTIONS (2)
  - Dry eye [None]
  - Erythema [None]

NARRATIVE: CASE EVENT DATE: 20220403
